FAERS Safety Report 20946282 (Version 2)
Quarter: 2022Q2

REPORT INFORMATION
  Report Type: Report from Study
  Country: US (occurrence: US)
  Receive Date: 20220610
  Receipt Date: 20220614
  Transmission Date: 20220721
  Serious: No
  Sender: FDA-Public Use
  Company Number: US-NOVARTISTESTPH-NVSC2022US133754

PATIENT
  Age: 59 Year
  Sex: Male

DRUGS (1)
  1. ENTRESTO [Suspect]
     Active Substance: SACUBITRIL\VALSARTAN
     Indication: Cardiomegaly
     Dosage: 1 DOSAGE FORM, BID (49/51MG)
     Route: 048
     Dates: start: 20220318

REACTIONS (4)
  - Heat stroke [Unknown]
  - Dehydration [Recovered/Resolved]
  - Inappropriate schedule of product administration [Unknown]
  - Product use in unapproved indication [Unknown]

NARRATIVE: CASE EVENT DATE: 20220501
